FAERS Safety Report 5120809-9 (Version None)
Quarter: 2006Q4

REPORT INFORMATION
  Report Type: 
  Country: None (occurrence: None)
  Receive Date: 20061005
  Receipt Date: 20061002
  Transmission Date: 20070319
  Serious: Yes (Death)
  Sender: FDA-Public Use
  Company Number: PHRM2006FR02705

PATIENT
  Age: 68 Year
  Sex: Male

DRUGS (6)
  1. ALDACTONE [Suspect]
     Indication: HYPERTENSION
  2. LORAZEPAM [Suspect]
  3. SKENAN [Suspect]
     Indication: PAIN
  4. OXEOL [Suspect]
  5. INSULIN [Suspect]
     Indication: DIABETES MELLITUS
  6. NISIS [Suspect]
     Indication: HYPERTENSION
     Dosage: 160 MG, QD
     Route: 048
     Dates: end: 20060721

REACTIONS (1)
  - SUDDEN DEATH [None]
